FAERS Safety Report 18940236 (Version 1)
Quarter: 2021Q1

REPORT INFORMATION
  Report Type: Report from Study
  Country: JP (occurrence: JP)
  Receive Date: 20210225
  Receipt Date: 20210225
  Transmission Date: 20210420
  Serious: Yes (Other)
  Sender: FDA-Public Use
  Company Number: JP-TAKEDA-2021TUS009168

PATIENT
  Age: 64 Year
  Sex: Female
  Weight: 46.5 kg

DRUGS (53)
  1. PONATINIB [Suspect]
     Active Substance: PONATINIB
     Dosage: 30 MILLIGRAM, QD
     Route: 048
     Dates: start: 20171028, end: 20171116
  2. PONATINIB [Suspect]
     Active Substance: PONATINIB
     Dosage: 30 MILLIGRAM, QD
     Route: 048
     Dates: start: 20171128, end: 20180510
  3. PONATINIB [Suspect]
     Active Substance: PONATINIB
     Dosage: 15 MILLIGRAM, QD
     Route: 048
     Dates: start: 20180511
  4. PREDNISOLONE. [Concomitant]
     Active Substance: PREDNISOLONE
     Dosage: UNK
     Route: 065
     Dates: start: 20170928, end: 20170930
  5. PREDNISOLONE. [Concomitant]
     Active Substance: PREDNISOLONE
     Dosage: UNK
     Route: 065
     Dates: start: 20171201, end: 20171204
  6. METHOTREXATE. [Concomitant]
     Active Substance: METHOTREXATE
     Dosage: UNK
     Route: 065
     Dates: start: 20170928, end: 20170930
  7. METHOTREXATE. [Concomitant]
     Active Substance: METHOTREXATE
     Dosage: UNK
     Route: 065
     Dates: start: 20180105, end: 20180105
  8. DEXART [Concomitant]
     Active Substance: DEXAMETHASONE SODIUM PHOSPHATE
     Dosage: UNK
     Route: 065
     Dates: start: 20170830, end: 20170830
  9. DAUNOMYCIN [DAUNORUBICIN HYDROCHLORIDE] [Concomitant]
     Active Substance: DAUNORUBICIN HYDROCHLORIDE
     Dosage: UNK
     Route: 065
     Dates: start: 20170830, end: 20170830
  10. ENDOXAN [CYCLOPHOSPHAMIDE MONOHYDRATE] [Concomitant]
     Active Substance: CYCLOPHOSPHAMIDE
     Dosage: UNK
     Route: 065
     Dates: start: 20170830, end: 20170830
  11. ONCOVIN [Concomitant]
     Active Substance: VINCRISTINE SULFATE
     Indication: ACUTE LYMPHOCYTIC LEUKAEMIA
     Dosage: UNK
     Route: 065
     Dates: start: 20170628, end: 20170719
  12. ONCOVIN [Concomitant]
     Active Substance: VINCRISTINE SULFATE
     Dosage: UNK
     Route: 065
     Dates: start: 20170830, end: 20170830
  13. ONCOVIN [Concomitant]
     Active Substance: VINCRISTINE SULFATE
     Dosage: UNK
     Route: 065
     Dates: start: 20180105, end: 20180105
  14. METHOTREXATE. [Concomitant]
     Active Substance: METHOTREXATE
     Dosage: UNK
     Route: 065
     Dates: start: 20171027, end: 20171027
  15. METHOTREXATE. [Concomitant]
     Active Substance: METHOTREXATE
     Dosage: UNK
     Route: 065
     Dates: start: 20180222, end: 20180222
  16. METHOTREXATE. [Concomitant]
     Active Substance: METHOTREXATE
     Dosage: UNK
     Route: 065
     Dates: start: 20170830, end: 20170830
  17. DEXART [Concomitant]
     Active Substance: DEXAMETHASONE SODIUM PHOSPHATE
     Dosage: UNK
     Route: 065
     Dates: start: 20180130, end: 20180202
  18. PONATINIB [Suspect]
     Active Substance: PONATINIB
     Indication: ACUTE LYMPHOCYTIC LEUKAEMIA
     Dosage: 30 MILLIGRAM, QD
     Route: 048
     Dates: start: 20170830, end: 20170920
  19. DAUNOMYCIN [DAUNORUBICIN HYDROCHLORIDE] [Concomitant]
     Active Substance: DAUNORUBICIN HYDROCHLORIDE
     Indication: ACUTE LYMPHOCYTIC LEUKAEMIA
     Dosage: UNK
     Route: 065
     Dates: start: 20170628, end: 20170719
  20. DAUNOMYCIN [DAUNORUBICIN HYDROCHLORIDE] [Concomitant]
     Active Substance: DAUNORUBICIN HYDROCHLORIDE
     Dosage: UNK
     Route: 065
     Dates: start: 20180105, end: 20180105
  21. DAUNOMYCIN [DAUNORUBICIN HYDROCHLORIDE] [Concomitant]
     Active Substance: DAUNORUBICIN HYDROCHLORIDE
     Dosage: UNK
     Route: 065
     Dates: start: 20180222, end: 20180222
  22. ENDOXAN [CYCLOPHOSPHAMIDE MONOHYDRATE] [Concomitant]
     Active Substance: CYCLOPHOSPHAMIDE
     Dosage: UNK
     Route: 065
     Dates: start: 20171027, end: 20171027
  23. ONCOVIN [Concomitant]
     Active Substance: VINCRISTINE SULFATE
     Dosage: UNK
     Route: 065
     Dates: start: 20180222, end: 20180222
  24. METHOTREXATE. [Concomitant]
     Active Substance: METHOTREXATE
     Dosage: UNK
     Route: 065
     Dates: start: 20171201, end: 20171204
  25. METHOTREXATE. [Concomitant]
     Active Substance: METHOTREXATE
     Dosage: UNK
     Route: 065
     Dates: start: 20180327, end: 20180329
  26. DEXART [Concomitant]
     Active Substance: DEXAMETHASONE SODIUM PHOSPHATE
     Indication: ACUTE LYMPHOCYTIC LEUKAEMIA
     Dosage: UNK
     Route: 065
     Dates: start: 20170628, end: 20170719
  27. CYLOCIDE [Concomitant]
     Active Substance: CYTARABINE
     Dosage: UNK
     Route: 065
     Dates: start: 20180327, end: 20180329
  28. PONATINIB [Suspect]
     Active Substance: PONATINIB
     Dosage: 30 MILLIGRAM, QD
     Route: 048
     Dates: start: 20171001, end: 20171021
  29. PREDNISOLONE. [Concomitant]
     Active Substance: PREDNISOLONE
     Dosage: UNK
     Route: 065
     Dates: start: 20180130, end: 20180202
  30. PREDNISOLONE. [Concomitant]
     Active Substance: PREDNISOLONE
     Dosage: UNK
     Route: 065
     Dates: start: 20180327, end: 20180329
  31. ENDOXAN [CYCLOPHOSPHAMIDE MONOHYDRATE] [Concomitant]
     Active Substance: CYCLOPHOSPHAMIDE
     Indication: ACUTE LYMPHOCYTIC LEUKAEMIA
     Dosage: UNK
     Route: 065
     Dates: start: 20170628, end: 20170719
  32. METHOTREXATE. [Concomitant]
     Active Substance: METHOTREXATE
     Dosage: UNK
     Route: 065
     Dates: start: 20180130, end: 20180202
  33. DEXART [Concomitant]
     Active Substance: DEXAMETHASONE SODIUM PHOSPHATE
     Dosage: UNK
     Route: 065
     Dates: start: 20170928, end: 20170930
  34. DEXART [Concomitant]
     Active Substance: DEXAMETHASONE SODIUM PHOSPHATE
     Dosage: UNK
     Route: 065
     Dates: start: 20180105, end: 20180105
  35. DEXART [Concomitant]
     Active Substance: DEXAMETHASONE SODIUM PHOSPHATE
     Dosage: UNK
     Route: 065
     Dates: start: 20180222, end: 20180222
  36. DEXART [Concomitant]
     Active Substance: DEXAMETHASONE SODIUM PHOSPHATE
     Dosage: UNK
     Route: 065
     Dates: start: 20180327, end: 20180329
  37. PREDNISOLONE. [Concomitant]
     Active Substance: PREDNISOLONE
     Dosage: UNK
     Route: 065
     Dates: start: 20170628, end: 20170719
  38. PREDNISOLONE. [Concomitant]
     Active Substance: PREDNISOLONE
     Dosage: UNK
     Route: 065
     Dates: start: 20180222, end: 20180222
  39. ENDOXAN [CYCLOPHOSPHAMIDE MONOHYDRATE] [Concomitant]
     Active Substance: CYCLOPHOSPHAMIDE
     Dosage: UNK
     Route: 065
     Dates: start: 20180222, end: 20180222
  40. DEXART [Concomitant]
     Active Substance: DEXAMETHASONE SODIUM PHOSPHATE
     Dosage: UNK
     Route: 065
     Dates: start: 20171027, end: 20171027
  41. CYLOCIDE [Concomitant]
     Active Substance: CYTARABINE
     Indication: ACUTE LYMPHOCYTIC LEUKAEMIA
     Dosage: UNK
     Route: 065
     Dates: start: 20170928, end: 20170930
  42. CYLOCIDE [Concomitant]
     Active Substance: CYTARABINE
     Dosage: UNK
     Route: 065
     Dates: start: 20180130, end: 20180202
  43. PREDNISOLONE. [Concomitant]
     Active Substance: PREDNISOLONE
     Indication: ACUTE LYMPHOCYTIC LEUKAEMIA
     Dosage: UNK
     Route: 065
     Dates: start: 20170429
  44. PREDNISOLONE. [Concomitant]
     Active Substance: PREDNISOLONE
     Dosage: UNK
     Route: 065
     Dates: start: 20170830, end: 20170830
  45. PREDNISOLONE. [Concomitant]
     Active Substance: PREDNISOLONE
     Dosage: UNK
     Route: 065
     Dates: start: 20171027, end: 20171027
  46. ENDOXAN [CYCLOPHOSPHAMIDE MONOHYDRATE] [Concomitant]
     Active Substance: CYCLOPHOSPHAMIDE
     Dosage: UNK
     Route: 065
     Dates: start: 20180105, end: 20180105
  47. ONCOVIN [Concomitant]
     Active Substance: VINCRISTINE SULFATE
     Dosage: UNK
     Route: 065
     Dates: start: 20171027, end: 20171027
  48. METHOTREXATE. [Concomitant]
     Active Substance: METHOTREXATE
     Indication: ACUTE LYMPHOCYTIC LEUKAEMIA
     Dosage: UNK
     Route: 065
     Dates: start: 20170628, end: 20170719
  49. DEXART [Concomitant]
     Active Substance: DEXAMETHASONE SODIUM PHOSPHATE
     Dosage: UNK
     Route: 065
     Dates: start: 20171201, end: 20171204
  50. PREDNISOLONE. [Concomitant]
     Active Substance: PREDNISOLONE
     Dosage: UNK
     Route: 065
     Dates: start: 20180105, end: 20180105
  51. DAUNOMYCIN [DAUNORUBICIN HYDROCHLORIDE] [Concomitant]
     Active Substance: DAUNORUBICIN HYDROCHLORIDE
     Dosage: UNK
     Route: 065
     Dates: start: 20171027, end: 20171027
  52. CYLOCIDE [Concomitant]
     Active Substance: CYTARABINE
     Dosage: UNK
     Route: 065
     Dates: start: 20171201, end: 20171204
  53. ITRIZOLE [Concomitant]
     Active Substance: ITRACONAZOLE
     Indication: PROPHYLAXIS
     Dosage: UNK
     Route: 065
     Dates: start: 20170627, end: 20171013

REACTIONS (1)
  - Pulmonary mycosis [Recovering/Resolving]

NARRATIVE: CASE EVENT DATE: 20171013
